FAERS Safety Report 16130153 (Version 1)
Quarter: 2019Q1

REPORT INFORMATION
  Report Type: Spontaneous
  Country: GB (occurrence: GB)
  Receive Date: 20190328
  Receipt Date: 20190328
  Transmission Date: 20190418
  Serious: Yes (Other)
  Sender: FDA-Public Use
  Company Number: GB-ASTRAZENECA-2019SE44178

PATIENT
  Age: 45 Year
  Sex: Male

DRUGS (9)
  1. SERTRALINE [Suspect]
     Active Substance: SERTRALINE HYDROCHLORIDE
     Route: 065
  2. MORPHINE [Concomitant]
     Active Substance: MORPHINE
  3. VITAMIN B COMPLEX STRONG [Concomitant]
     Route: 048
  4. THIAMINE. [Concomitant]
     Active Substance: THIAMINE
  5. PREGABALIN. [Concomitant]
     Active Substance: PREGABALIN
  6. FLUPENTIXOL [Suspect]
     Active Substance: FLUPENTIXOL
     Route: 065
  7. PARACETAMOL [Concomitant]
     Active Substance: ACETAMINOPHEN
  8. ESOMEPRAZOLE. [Suspect]
     Active Substance: ESOMEPRAZOLE MAGNESIUM
     Route: 048
  9. AMITRIPTYLINE [Suspect]
     Active Substance: AMITRIPTYLINE
     Route: 065

REACTIONS (1)
  - Electrocardiogram QT prolonged [Not Recovered/Not Resolved]
